FAERS Safety Report 19077935 (Version 1)
Quarter: 2021Q1

REPORT INFORMATION
  Report Type: Spontaneous
  Country: NL (occurrence: NL)
  Receive Date: 20210331
  Receipt Date: 20210331
  Transmission Date: 20210420
  Serious: Yes (Other)
  Sender: FDA-Public Use
  Company Number: NL-ACCORD-221094

PATIENT
  Age: 51 Year
  Sex: Female
  Weight: 62 kg

DRUGS (4)
  1. CLOZAPINE. [Suspect]
     Active Substance: CLOZAPINE
     Indication: SCHIZOPHRENIA
     Dosage: TABLET 100MG?1 TIME PER DAY 6 PIECES
     Dates: start: 1993
  2. ARIPIPRAZOLE. [Suspect]
     Active Substance: ARIPIPRAZOLE
     Indication: SCHIZOPHRENIA
     Dosage: 2 TIMES DAILY 20 MG
     Dates: start: 2009
  3. EFEXOR XR [Suspect]
     Active Substance: VENLAFAXINE HYDROCHLORIDE
     Indication: DEPRESSION
     Dosage: 2 TIMES PER DAY 150 MG
     Dates: start: 2005
  4. METFORMIN [Concomitant]
     Active Substance: METFORMIN HYDROCHLORIDE
     Indication: DIABETES MELLITUS
     Dosage: MODIFIED?RELEASE TABLET, 1000 MG (MILLIGRAMS)

REACTIONS (8)
  - Depressive symptom [Not Recovered/Not Resolved]
  - Hallucination [Not Recovered/Not Resolved]
  - Depersonalisation/derealisation disorder [Not Recovered/Not Resolved]
  - Weight increased [Recovered/Resolved]
  - Suspiciousness [Not Recovered/Not Resolved]
  - Diabetes mellitus [Recovered/Resolved]
  - Psychotic symptom [Not Recovered/Not Resolved]
  - Fear [Not Recovered/Not Resolved]

NARRATIVE: CASE EVENT DATE: 2010
